FAERS Safety Report 12413745 (Version 1)
Quarter: 2016Q2

REPORT INFORMATION
  Report Type: Spontaneous
  Country: US (occurrence: US)
  Receive Date: 20160527
  Receipt Date: 20160527
  Transmission Date: 20160815
  Serious: No
  Sender: FDA-Public Use
  Company Number: US-SUPERNUS PHARMACEUTICALS, INC.-2016SUP00058

PATIENT
  Age: 59 Year
  Sex: Female
  Weight: 125.17 kg

DRUGS (4)
  1. UNSPECIFIED MEDICATIONS AND SUPPLEMENTS [Concomitant]
  2. TROKENDI XR [Suspect]
     Active Substance: TOPIRAMATE
     Indication: DECREASED APPETITE
     Dosage: 50 MG, 1X/DAY
     Route: 048
     Dates: start: 20160304, end: 20160313
  3. TROKENDI XR [Suspect]
     Active Substance: TOPIRAMATE
     Indication: DECREASED APPETITE
     Dosage: UNK
     Route: 048
     Dates: start: 20160107, end: 20160303
  4. UNSPECIFIED INHALER [Concomitant]
     Active Substance: UNSPECIFIED INGREDIENT

REACTIONS (6)
  - Flatulence [Recovering/Resolving]
  - Fatigue [Recovered/Resolved]
  - Abdominal pain [Recovering/Resolving]
  - Constipation [Unknown]
  - Off label use [Recovered/Resolved]
  - Abdominal distension [Recovering/Resolving]

NARRATIVE: CASE EVENT DATE: 201601
